FAERS Safety Report 10211596 (Version 3)
Quarter: 2014Q3

REPORT INFORMATION
  Report Type: Spontaneous
  Country: RU (occurrence: None)
  Receive Date: 20140528
  Receipt Date: 20140703
  Transmission Date: 20150326
  Serious: Yes (Hospitalization)
  Sender: FDA-Public Use
  Company Number: KAD201405-000565

PATIENT
  Age: 36 Year
  Sex: Male

DRUGS (5)
  1. RIBAVIRIN (RIBAVIRIN) [Suspect]
     Active Substance: RIBAVIRIN
     Indication: CHRONIC HEPATITIS C
     Route: 048
     Dates: start: 20130814, end: 20131103
  2. TELAPREVIR (TELAPREVIR) [Suspect]
     Active Substance: TELAPREVIR
     Indication: CHRONIC HEPATITIS C
     Route: 048
     Dates: start: 20130814, end: 20131103
  3. PEGINTERFERON ALFA-2A [Suspect]
     Active Substance: PEGINTERFERON ALFA-2A
     Indication: CHRONIC HEPATITIS C
     Route: 058
     Dates: start: 20130814, end: 20131030
  4. BMS 914143 (PEGINTERFERON LAMBDA) [Suspect]
     Active Substance: PEGINTERFERON LAMBDA-1A
     Indication: CHRONIC HEPATITIS C
     Route: 058
     Dates: start: 20130814, end: 20131030
  5. PREDNISOLONE (PREDNISOLONE) [Concomitant]
     Active Substance: PREDNISOLONE

REACTIONS (23)
  - Cerebrovascular accident [None]
  - Heart rate decreased [None]
  - Neutropenia [None]
  - Sleep disorder [None]
  - Demyelination [None]
  - Haemoglobin increased [None]
  - Lipase increased [None]
  - Headache [None]
  - Electrocardiogram abnormal [None]
  - Irritability [None]
  - Haematoma [None]
  - Venous angioma of brain [None]
  - Pruritus [None]
  - Haematocrit increased [None]
  - Thrombocytopenia [None]
  - Nausea [None]
  - Retinal vascular disorder [None]
  - Hydrocephalus [None]
  - Gait disturbance [None]
  - Leukopenia [None]
  - Vomiting [None]
  - Dysarthria [None]
  - Pyrexia [None]

NARRATIVE: CASE EVENT DATE: 20131103
